FAERS Safety Report 11775841 (Version 4)
Quarter: 2017Q4

REPORT INFORMATION
  Report Type: Spontaneous
  Country: US (occurrence: US)
  Receive Date: 20151125
  Receipt Date: 20171103
  Transmission Date: 20180320
  Serious: Yes (Other)
  Sender: FDA-Public Use
  Company Number: US-JNJFOC-20151102375

PATIENT
  Sex: Male

DRUGS (26)
  1. RISPERDAL [Suspect]
     Active Substance: RISPERIDONE
     Indication: ATTENTION DEFICIT/HYPERACTIVITY DISORDER
     Dosage: IN VARYING DOSE OF 0.5 TO 01 MG
     Route: 048
     Dates: start: 20001027, end: 20031203
  2. RISPERDAL [Suspect]
     Active Substance: RISPERIDONE
     Indication: ATTENTION DEFICIT/HYPERACTIVITY DISORDER
     Route: 048
     Dates: start: 20031031
  3. RISPERDAL [Suspect]
     Active Substance: RISPERIDONE
     Indication: ATTENTION DEFICIT/HYPERACTIVITY DISORDER
     Route: 048
  4. RISPERDAL [Suspect]
     Active Substance: RISPERIDONE
     Indication: BIPOLAR II DISORDER
     Route: 048
     Dates: start: 20001027
  5. RISPERDAL [Suspect]
     Active Substance: RISPERIDONE
     Indication: DEPRESSION
     Dosage: IN VARYING DOSE OF 0.5 TO 01 MG
     Route: 048
     Dates: start: 20001027, end: 20031203
  6. RISPERDAL [Suspect]
     Active Substance: RISPERIDONE
     Indication: READING DISORDER
     Route: 048
     Dates: start: 20030624
  7. RISPERDAL [Suspect]
     Active Substance: RISPERIDONE
     Indication: ATTENTION DEFICIT/HYPERACTIVITY DISORDER
     Route: 048
     Dates: start: 20030624
  8. RISPERDAL [Suspect]
     Active Substance: RISPERIDONE
     Indication: DEPRESSION
     Route: 048
     Dates: start: 20031031
  9. RISPERDAL [Suspect]
     Active Substance: RISPERIDONE
     Indication: BIPOLAR II DISORDER
     Route: 048
  10. RISPERDAL [Suspect]
     Active Substance: RISPERIDONE
     Indication: BIPOLAR II DISORDER
     Route: 048
     Dates: start: 20030624
  11. RISPERDAL [Suspect]
     Active Substance: RISPERIDONE
     Indication: DEPRESSION
     Route: 048
     Dates: start: 20010131, end: 20031119
  12. RISPERDAL [Suspect]
     Active Substance: RISPERIDONE
     Indication: DEPRESSION
     Route: 048
     Dates: start: 20001027
  13. RISPERDAL [Suspect]
     Active Substance: RISPERIDONE
     Indication: DEPRESSION
     Route: 048
     Dates: start: 20030624
  14. RISPERDAL [Suspect]
     Active Substance: RISPERIDONE
     Indication: READING DISORDER
     Route: 048
  15. RISPERDAL [Suspect]
     Active Substance: RISPERIDONE
     Indication: BIPOLAR II DISORDER
     Route: 048
     Dates: start: 20010216
  16. RISPERDAL [Suspect]
     Active Substance: RISPERIDONE
     Indication: BIPOLAR II DISORDER
     Dosage: IN VARYING DOSE OF 0.5 TO 01 MG
     Route: 048
     Dates: start: 20001027, end: 20031203
  17. RISPERDAL [Suspect]
     Active Substance: RISPERIDONE
     Indication: READING DISORDER
     Route: 048
     Dates: start: 20031031
  18. RISPERDAL [Suspect]
     Active Substance: RISPERIDONE
     Indication: READING DISORDER
     Dosage: IN VARYING DOSE OF 0.5 TO 01 MG
     Route: 048
     Dates: start: 20001027, end: 20031203
  19. RISPERDAL [Suspect]
     Active Substance: RISPERIDONE
     Indication: READING DISORDER
     Route: 048
     Dates: start: 20001027
  20. RISPERDAL [Suspect]
     Active Substance: RISPERIDONE
     Indication: BIPOLAR II DISORDER
     Route: 048
     Dates: start: 20031031
  21. RISPERDAL [Suspect]
     Active Substance: RISPERIDONE
     Indication: ATTENTION DEFICIT/HYPERACTIVITY DISORDER
     Route: 048
     Dates: start: 20010216
  22. RISPERDAL [Suspect]
     Active Substance: RISPERIDONE
     Indication: READING DISORDER
     Route: 048
     Dates: start: 20010131, end: 20031119
  23. RISPERDAL [Suspect]
     Active Substance: RISPERIDONE
     Indication: BIPOLAR II DISORDER
     Route: 048
     Dates: start: 20010131, end: 20031119
  24. RISPERDAL [Suspect]
     Active Substance: RISPERIDONE
     Indication: ATTENTION DEFICIT/HYPERACTIVITY DISORDER
     Route: 048
     Dates: start: 20010131, end: 20031119
  25. RISPERDAL [Suspect]
     Active Substance: RISPERIDONE
     Indication: ATTENTION DEFICIT/HYPERACTIVITY DISORDER
     Route: 048
     Dates: start: 20001027
  26. RISPERDAL [Suspect]
     Active Substance: RISPERIDONE
     Indication: READING DISORDER
     Route: 048
     Dates: start: 20010216

REACTIONS (4)
  - Gynaecomastia [Unknown]
  - Increased appetite [Unknown]
  - Obesity [Unknown]
  - Emotional disorder [Unknown]

NARRATIVE: CASE EVENT DATE: 2001
